FAERS Safety Report 23762067 (Version 1)
Quarter: 2024Q2

REPORT INFORMATION
  Report Type: Spontaneous
  Country: DE (occurrence: DE)
  Receive Date: 20240419
  Receipt Date: 20240419
  Transmission Date: 20240717
  Serious: No
  Sender: FDA-Public Use
  Company Number: DE-Merck Healthcare KGaA-2024010097

PATIENT
  Age: 84 Year
  Sex: Female
  Weight: 90 kg

DRUGS (3)
  1. EUTHYROX [Suspect]
     Active Substance: LEVOTHYROXINE SODIUM
     Indication: Post procedural hypothyroidism
     Dosage: EUTHYROX 100 MICROGRAM TABLETS 1-0-0
  2. ASPIRIN [Concomitant]
     Active Substance: ASPIRIN
     Indication: Product used for unknown indication
     Dosage: 100 FROM THE 6TH POSTOPERATIVE DAY
  3. RAMIPRIL [Concomitant]
     Active Substance: RAMIPRIL
     Indication: Product used for unknown indication
     Dosage: 1A, 5MG, 25 MG

REACTIONS (6)
  - Skin disorder [Unknown]
  - Glycosylated haemoglobin increased [Unknown]
  - Vitamin D deficiency [Unknown]
  - Hyperhidrosis [Not Recovered/Not Resolved]
  - Incorrect dose administered [Unknown]
  - Product dispensing error [Unknown]
